FAERS Safety Report 5507286-0 (Version None)
Quarter: 2007Q4

REPORT INFORMATION
  Report Type: 
  Country: None (occurrence: None)
  Receive Date: 20071106
  Receipt Date: 20071029
  Transmission Date: 20080405
  Serious: Yes (Other)
  Sender: FDA-Public Use
  Company Number: PHNU2007SI03617

PATIENT
  Sex: Female

DRUGS (4)
  1. LEPONEX [Suspect]
     Dosage: 100-100-200 MG/DAY
     Route: 048
  2. TEGRETOL [Concomitant]
     Dosage: 200 MG, QD
     Route: 048
  3. PROPRANOLOL [Concomitant]
     Dosage: 20 MG, BID
     Route: 048
  4. PORTAL [Concomitant]
     Dosage: 20 MG, QD
     Route: 048

REACTIONS (2)
  - JAUNDICE [None]
  - PANCREATIC CARCINOMA [None]
